FAERS Safety Report 21667986 (Version 1)
Quarter: 2022Q4

REPORT INFORMATION
  Report Type: Spontaneous
  Country: US (occurrence: US)
  Receive Date: 20221201
  Receipt Date: 20221201
  Transmission Date: 20230113
  Serious: Yes (Life-Threatening, Hospitalization)
  Sender: FDA-Public Use
  Company Number: US-SAMSUNG BIOEPIS-SB-2022-20379

PATIENT
  Age: 6 Year

DRUGS (3)
  1. RENFLEXIS [Suspect]
     Active Substance: INFLIXIMAB-ABDA
     Indication: Crohn^s disease
     Route: 065
  2. RENFLEXIS [Suspect]
     Active Substance: INFLIXIMAB-ABDA
     Indication: Juvenile idiopathic arthritis
  3. RENFLEXIS [Suspect]
     Active Substance: INFLIXIMAB-ABDA
     Indication: Uveitis

REACTIONS (6)
  - Vomiting [Unknown]
  - Pyrexia [Unknown]
  - Erythema [Unknown]
  - Agitation [Unknown]
  - Infusion related reaction [Unknown]
  - Product use in unapproved indication [Unknown]
